FAERS Safety Report 9677611 (Version 2)
Quarter: 2013Q4

REPORT INFORMATION
  Report Type: Report from Study
  Country: US (occurrence: US)
  Receive Date: 20131108
  Receipt Date: 20131114
  Transmission Date: 20140711
  Serious: Yes (Hospitalization)
  Sender: FDA-Public Use
  Company Number: US-JNJFOC-20131101011

PATIENT
  Age: 9 Year
  Sex: Female
  Weight: 52.2 kg

DRUGS (3)
  1. REMICADE [Suspect]
     Indication: INFLAMMATORY BOWEL DISEASE
     Route: 042
     Dates: start: 20071231
  2. MULTIVITAMINS [Concomitant]
     Route: 065
  3. VALTREX [Concomitant]
     Route: 065

REACTIONS (1)
  - Sydenham^s chorea [Recovered/Resolved with Sequelae]
